FAERS Safety Report 11052237 (Version 2)
Quarter: 2015Q2

REPORT INFORMATION
  Report Type: Report from Study
  Country: US (occurrence: US)
  Receive Date: 20150421
  Receipt Date: 20150429
  Transmission Date: 20150821
  Serious: Yes (Hospitalization)
  Sender: FDA-Public Use
  Company Number: US-BAYER-2015-016299

PATIENT
  Age: 49 Year
  Sex: Male

DRUGS (3)
  1. NEXAVAR [Suspect]
     Active Substance: SORAFENIB
     Indication: HEPATOCELLULAR CARCINOMA
     Dosage: 200 MG, BID
     Route: 048
     Dates: start: 20150126, end: 201502
  2. NEXAVAR [Suspect]
     Active Substance: SORAFENIB
     Indication: HEPATOCELLULAR CARCINOMA
     Dosage: 200 MG, BID
     Route: 048
     Dates: end: 201503
  3. NEXAVAR [Suspect]
     Active Substance: SORAFENIB
     Indication: HEPATOCELLULAR CARCINOMA
     Dosage: 200 MG, BID
     Route: 048
     Dates: start: 201503, end: 20150403

REACTIONS (12)
  - Haemorrhoidal haemorrhage [None]
  - Pruritus [None]
  - Anaemia [None]
  - Asthenia [None]
  - Dry skin [None]
  - Vomiting [None]
  - Nausea [None]
  - Hypotension [None]
  - Blood pressure increased [None]
  - Memory impairment [None]
  - Haemorrhoidal haemorrhage [None]
  - Insomnia [None]

NARRATIVE: CASE EVENT DATE: 201501
